FAERS Safety Report 5280424-3 (Version None)
Quarter: 2007Q1

REPORT INFORMATION
  Report Type: 
  Country: None (occurrence: None)
  Receive Date: 20070326
  Receipt Date: 20070326
  Transmission Date: 20070707
  Serious: Yes (Hospitalization)
  Sender: FDA-Public Use
  Company Number: None

PATIENT
  Sex: Male
  Weight: 27.9 kg

DRUGS (1)
  1. CYTARABINE [Suspect]
     Dosage: 11520 G

REACTIONS (3)
  - INFLUENZA SEROLOGY POSITIVE [None]
  - PYREXIA [None]
  - RESPIRATORY FAILURE [None]
